FAERS Safety Report 7119211-X (Version None)
Quarter: 2010Q4

REPORT INFORMATION
  Report Type: 
  Country: None (occurrence: None)
  Receive Date: 20101123
  Receipt Date: 20101111
  Transmission Date: 20110411
  Serious: Yes (Hospitalization)
  Sender: FDA-Public Use
  Company Number: US-BAYER-201041393NA

PATIENT
  Age: 36 Year
  Sex: Female

DRUGS (11)
  1. CIPRO [Suspect]
     Indication: CYSTITIS
     Route: 042
     Dates: start: 20100912, end: 20100914
  2. CIPRO [Suspect]
     Route: 048
     Dates: start: 20100917, end: 20100926
  3. CIPRO [Suspect]
     Route: 048
     Dates: start: 20100830, end: 20100908
  4. MAGNESIUM [Concomitant]
  5. FLAGYL [Concomitant]
  6. ROCEPHIN [Concomitant]
  7. AVANDIA [Concomitant]
  8. ALEVE (CAPLET) [Concomitant]
  9. SOMA [Concomitant]
  10. TYLENOL (CAPLET) [Concomitant]
  11. IBUPROFEN [Concomitant]

REACTIONS (3)
  - HYPOAESTHESIA [None]
  - PARAESTHESIA [None]
  - THERMOHYPOAESTHESIA [None]
